FAERS Safety Report 13069635 (Version 1)
Quarter: 2016Q4

REPORT INFORMATION
  Report Type: Spontaneous
  Country: DE (occurrence: DE)
  Receive Date: 20161228
  Receipt Date: 20161228
  Transmission Date: 20170207
  Serious: Yes (Life-Threatening, Hospitalization, Other)
  Sender: FDA-Public Use
  Company Number: DE-TEVA-724529ACC

PATIENT

DRUGS (11)
  1. BENDAMUSTINE HYDROCHLORIDE. [Suspect]
     Active Substance: BENDAMUSTINE HYDROCHLORIDE
     Indication: PRODUCT USED FOR UNKNOWN INDICATION
     Route: 042
     Dates: start: 201101, end: 201103
  2. IBRUTINIB [Suspect]
     Active Substance: IBRUTINIB
     Dosage: 280 MILLIGRAM DAILY;
     Route: 065
  3. BENDAMUSTINE HYDROCHLORIDE. [Suspect]
     Active Substance: BENDAMUSTINE HYDROCHLORIDE
     Dosage: (2 CYCLES)
     Route: 042
     Dates: start: 201401, end: 201402
  4. RITUXIMAB [Suspect]
     Active Substance: RITUXIMAB
     Route: 065
     Dates: start: 201310
  5. IBRUTINIB [Suspect]
     Active Substance: IBRUTINIB
     Dosage: 140 MILLIGRAM DAILY;
     Route: 065
     Dates: start: 201504
  6. BENDAMUSTINE HYDROCHLORIDE. [Suspect]
     Active Substance: BENDAMUSTINE HYDROCHLORIDE
     Route: 042
     Dates: start: 201310
  7. OFATUMUMAB [Suspect]
     Active Substance: OFATUMUMAB
     Indication: PRODUCT USED FOR UNKNOWN INDICATION
     Dosage: (12 CYCLES)
     Route: 065
     Dates: start: 201507, end: 201601
  8. RITUXIMAB [Suspect]
     Active Substance: RITUXIMAB
     Indication: PRODUCT USED FOR UNKNOWN INDICATION
     Route: 065
     Dates: start: 201101, end: 201103
  9. IBRUTINIB [Suspect]
     Active Substance: IBRUTINIB
     Indication: PRODUCT USED FOR UNKNOWN INDICATION
     Dosage: 420 MILLIGRAM DAILY;
     Route: 065
     Dates: start: 201501, end: 201507
  10. BENDAMUSTINE HYDROCHLORIDE. [Suspect]
     Active Substance: BENDAMUSTINE HYDROCHLORIDE
     Route: 042
  11. RITUXIMAB [Suspect]
     Active Substance: RITUXIMAB
     Route: 065

REACTIONS (21)
  - Infection [Unknown]
  - Inguinal hernia [Unknown]
  - Spinal column stenosis [Unknown]
  - Otitis media [Unknown]
  - Drug hypersensitivity [Unknown]
  - Abscess [Unknown]
  - Acute myeloid leukaemia [Not Recovered/Not Resolved]
  - Thrombocytopenia [Unknown]
  - Metastasis [Unknown]
  - Staphylococcal sepsis [Unknown]
  - Pneumonia [Unknown]
  - Bronchitis [Unknown]
  - Splenomegaly [Unknown]
  - Pain [Unknown]
  - Device related infection [Unknown]
  - Hyperparathyroidism secondary [Unknown]
  - Squamous cell carcinoma of skin [Not Recovered/Not Resolved]
  - Secondary immunodeficiency [Unknown]
  - Haematotoxicity [Unknown]
  - Pyrexia [Unknown]
  - Chills [Unknown]

NARRATIVE: CASE EVENT DATE: 2011
